FAERS Safety Report 6720935-4 (Version None)
Quarter: 2010Q2

REPORT INFORMATION
  Report Type: 
  Country: None (occurrence: None)
  Receive Date: 20100512
  Receipt Date: 20100505
  Transmission Date: 20101027
  Serious: Yes (Life-Threatening, Hospitalization)
  Sender: FDA-Public Use
  Company Number: FR-JNJFOC-20100406821

PATIENT
  Age: 79 Year
  Sex: Male

DRUGS (16)
  1. TAVANIC [Suspect]
     Indication: POSTOPERATIVE WOUND INFECTION
     Route: 048
  2. RIFADIN [Suspect]
     Indication: POSTOPERATIVE WOUND INFECTION
     Route: 048
  3. IODOFORM [Suspect]
     Indication: POSTOPERATIVE WOUND INFECTION
     Route: 065
  4. BETADINE [Suspect]
     Indication: POSTOPERATIVE WOUND INFECTION
     Dosage: IRRIGATION
     Route: 065
  5. KARDEGIC [Concomitant]
     Route: 065
  6. DOLIPRANE [Concomitant]
     Route: 065
  7. GLUCOPHAGE [Concomitant]
     Route: 065
  8. AMAREL [Concomitant]
     Route: 065
  9. TAREG [Concomitant]
     Route: 065
  10. TEGRETOL [Concomitant]
     Route: 065
  11. MODAFINIL [Concomitant]
     Route: 065
  12. LANSOPRAZOLE [Concomitant]
     Route: 065
  13. LASIX [Concomitant]
     Route: 065
  14. ATARAX [Concomitant]
     Route: 065
  15. TOBREX [Concomitant]
     Route: 065
  16. CARBOMER [Concomitant]
     Route: 065

REACTIONS (12)
  - ALTERED STATE OF CONSCIOUSNESS [None]
  - DEHYDRATION [None]
  - DEPRESSED LEVEL OF CONSCIOUSNESS [None]
  - DIALYSIS [None]
  - DRUG TOXICITY [None]
  - MALAISE [None]
  - METABOLIC ACIDOSIS [None]
  - PRURITUS [None]
  - RASH [None]
  - RENAL FAILURE ACUTE [None]
  - SHOCK [None]
  - VOMITING [None]
